FAERS Safety Report 7579381-6 (Version None)
Quarter: 2011Q2

REPORT INFORMATION
  Report Type: 
  Country: None (occurrence: None)
  Receive Date: 20110629
  Receipt Date: 20110621
  Transmission Date: 20111010
  Serious: Yes (Death, Hospitalization, Other)
  Sender: FDA-Public Use
  Company Number: US-BIOGENIDEC-2011BI016479

PATIENT
  Age: 53 Year
  Sex: Female

DRUGS (12)
  1. ASPIRIN [Concomitant]
     Route: 048
  2. KLONOPIN [Concomitant]
     Route: 048
  3. CALCIFEROL [Concomitant]
  4. GABAPENTIN [Concomitant]
     Route: 048
  5. ATENOLOL [Concomitant]
     Route: 048
  6. ROSUVASTATIN [Concomitant]
     Route: 048
  7. ZANAFLEX [Concomitant]
     Route: 048
  8. ZOLOFT [Concomitant]
     Route: 048
  9. TYSABRI [Suspect]
     Indication: MULTIPLE SCLEROSIS
     Route: 042
     Dates: start: 20070124, end: 20110309
  10. BACLOFEN [Concomitant]
     Route: 048
  11. LOVENOX [Concomitant]
  12. BACTRIM [Concomitant]
     Route: 048

REACTIONS (3)
  - IMMUNE RECONSTITUTION SYNDROME [None]
  - DEATH [None]
  - PROGRESSIVE MULTIFOCAL LEUKOENCEPHALOPATHY [None]
